FAERS Safety Report 18007647 (Version 3)
Quarter: 2020Q3

REPORT INFORMATION
  Report Type: Report from Study
  Country: FR (occurrence: FR)
  Receive Date: 20200710
  Receipt Date: 20200820
  Transmission Date: 20201103
  Serious: Yes (Hospitalization, Other)
  Sender: FDA-Public Use
  Company Number: FR-SA-2020SA174626

PATIENT

DRUGS (12)
  1. BACTRIM [Concomitant]
     Active Substance: SULFAMETHOXAZOLE\TRIMETHOPRIM
     Dosage: 1 DF, TIW
  2. LAROXYL [Concomitant]
     Active Substance: AMITRIPTYLINE HYDROCHLORIDE
     Dosage: 10 DF (10 DROPS IN THE EVENING)
  3. OXYCONTIN [Concomitant]
     Active Substance: OXYCODONE HYDROCHLORIDE
     Dosage: 10 MG, BID (10 MG IN THE MORNING, 10 MG IN THE EVENING)
  4. LANSOPRAZOLE. [Concomitant]
     Active Substance: LANSOPRAZOLE
  5. ZOPHREN [ONDANSETRON] [Concomitant]
     Active Substance: ONDANSETRON
     Indication: NAUSEA
     Dosage: UNK UNK, Q12H
  6. ALEMTUZUMAB [Suspect]
     Active Substance: ALEMTUZUMAB
     Dosage: 30 MG/ML, TIW
     Route: 041
     Dates: start: 20200603
  7. LEDERFOLINE [Concomitant]
     Active Substance: LEUCOVORIN CALCIUM
     Dosage: 25 MG, TIW
  8. ZELITREX [Concomitant]
     Active Substance: VALACYCLOVIR HYDROCHLORIDE
     Dosage: 1 DF, QD
  9. ALEMTUZUMAB [Suspect]
     Active Substance: ALEMTUZUMAB
     Indication: T-CELL PROLYMPHOCYTIC LEUKAEMIA
     Dosage: 30 MG/ML, TIW
     Route: 041
     Dates: start: 20200430
  10. ZOPHREN [ONDANSETRON] [Concomitant]
     Active Substance: ONDANSETRON
     Indication: VOMITING
  11. ALEMTUZUMAB [Suspect]
     Active Substance: ALEMTUZUMAB
     Dosage: 30 MG, BIW
     Route: 041
     Dates: start: 20200706
  12. OXYNORMORO [Concomitant]
     Active Substance: OXYCODONE HYDROCHLORIDE
     Dosage: 2 DF, QD

REACTIONS (14)
  - Abdominal pain [Unknown]
  - Intentional dose omission [Unknown]
  - Incorrect route of product administration [Unknown]
  - Thrombocytopenia [Recovered/Resolved]
  - Gastritis [Unknown]
  - Throat irritation [Unknown]
  - Vomiting [Unknown]
  - Gastrooesophageal reflux disease [Unknown]
  - Oesophageal pain [Recovering/Resolving]
  - Oesophageal ulcer [Recovering/Resolving]
  - Oesophageal candidiasis [Recovered/Resolved]
  - Decreased appetite [Recovering/Resolving]
  - Dysphagia [Unknown]
  - Mouth haemorrhage [Unknown]

NARRATIVE: CASE EVENT DATE: 2020
